FAERS Safety Report 22218843 (Version 8)
Quarter: 2024Q3

REPORT INFORMATION
  Report Type: Spontaneous
  Country: US (occurrence: US)
  Receive Date: 20230417
  Receipt Date: 20240918
  Transmission Date: 20241017
  Serious: Yes (Other)
  Sender: PFIZER
  Company Number: US-PFIZER INC-202300155836

PATIENT
  Age: 63 Year
  Sex: Female
  Weight: 54.875 kg

DRUGS (18)
  1. IBRANCE [Suspect]
     Active Substance: PALBOCICLIB
     Indication: Breast cancer female
     Dosage: 125 MG, CYCLIC (DAYS 1-21 A 28DAYS)
     Route: 048
     Dates: start: 20230307
  2. IBRANCE [Suspect]
     Active Substance: PALBOCICLIB
     Dosage: 125 MG, CYCLIC (DAILY ON DAYS 1 THROUGH 21 OF A 28 DAY CYCLE)
     Route: 048
     Dates: start: 20230321
  3. IBRANCE [Suspect]
     Active Substance: PALBOCICLIB
     Dosage: 125 MG, CYCLIC (DAILY ON DAYS 1 THROUGH 21 OF A 28 DAY CYCLE)
     Route: 048
     Dates: start: 20230401, end: 20230416
  4. IBRANCE [Suspect]
     Active Substance: PALBOCICLIB
     Dosage: 75  MG, CYCLIC (1 TABLET DAILY ON DAYS 1 THROUGH 21 OF A 28 DAY CYCLE)
     Route: 048
     Dates: start: 20230321
  5. IBRANCE [Suspect]
     Active Substance: PALBOCICLIB
     Dosage: 75 MG, CYCLIC (DAILY DAYS 1-21 Q 28 DAYS, TAKE WITH OR WITHOUT FOOD)
     Route: 048
  6. ZOMETA [Concomitant]
     Active Substance: ZOLEDRONIC ACID
     Dosage: UNK
  7. LETROZOLE [Concomitant]
     Active Substance: LETROZOLE
     Indication: Breast cancer female
     Dosage: 2.5 MG, DAILY
     Dates: start: 20230307
  8. ALPHA LIPOIC ACID [Concomitant]
     Active Substance: .ALPHA.-LIPOIC ACID
     Dosage: UNK
  9. SYNTHROID [Concomitant]
     Active Substance: LEVOTHYROXINE SODIUM
     Dosage: UNK
  10. PROPRANOLOL HYDROCHLORIDE [Concomitant]
     Active Substance: PROPRANOLOL HYDROCHLORIDE
     Dosage: UNK
  11. MSM [Concomitant]
     Active Substance: DIMETHYL SULFONE
     Dosage: UNK
  12. ACYCLOVIR [Concomitant]
     Active Substance: ACYCLOVIR
     Dosage: UNK
  13. LORAZEPAM [Concomitant]
     Active Substance: LORAZEPAM
     Dosage: UNK
  14. HOLY BASIL [Concomitant]
     Dosage: UNK
  15. DIETARY SUPPLEMENT [Concomitant]
     Active Substance: DIETARY SUPPLEMENT
     Dosage: UNK
  16. TURKEY TAIL MUSHROOM [Concomitant]
     Dosage: UNK
  17. BROMALINE [BROMPHENIRAMINE MALEATE;PHENYLPROPANOLAMINE HYDROCHLORIDE] [Concomitant]
     Dosage: UNK
  18. SKULLCAP [SCUTELLARIA LATERIFLORA HERB] [Concomitant]
     Dosage: UNK

REACTIONS (28)
  - Neuropathy peripheral [Recovering/Resolving]
  - White blood cell count decreased [Recovering/Resolving]
  - Neuropathy peripheral [Unknown]
  - Hypothyroidism [Unknown]
  - Neoplasm progression [Unknown]
  - Fatigue [Not Recovered/Not Resolved]
  - Feeling hot [Not Recovered/Not Resolved]
  - Feeling of body temperature change [Recovering/Resolving]
  - Full blood count decreased [Recovering/Resolving]
  - Platelet count decreased [Recovering/Resolving]
  - Neutrophil count decreased [Recovering/Resolving]
  - Asthenia [Recovering/Resolving]
  - Hypersomnia [Recovering/Resolving]
  - Balance disorder [Recovering/Resolving]
  - Brain fog [Recovering/Resolving]
  - Hot flush [Recovering/Resolving]
  - Nasopharyngitis [Recovering/Resolving]
  - Cognitive disorder [Recovering/Resolving]
  - Tongue geographic [Not Recovered/Not Resolved]
  - Large intestine polyp [Unknown]
  - Oedema [Unknown]
  - Dyspnoea [Unknown]
  - Hypersomnia [Unknown]
  - Osteopenia [Unknown]
  - Insulin resistance [Unknown]
  - Temporomandibular pain and dysfunction syndrome [Unknown]
  - Menopausal symptoms [Unknown]
  - Vitamin D deficiency [Unknown]

NARRATIVE: CASE EVENT DATE: 20230101
